FAERS Safety Report 6857895-1 (Version None)
Quarter: 2010Q3

REPORT INFORMATION
  Report Type: 
  Country: None (occurrence: None)
  Receive Date: 20100714
  Receipt Date: 20100630
  Transmission Date: 20110219
  Serious: Yes (Other)
  Sender: FDA-Public Use
  Company Number: 1000014406

PATIENT
  Age: 19 Year
  Sex: Male
  Weight: 32 kg

DRUGS (2)
  1. CITALOPRAM HYDROBROMIDE [Suspect]
     Indication: RESTLESSNESS
     Dosage: 20 MG (20 MG, 1 IN 1 D), ORAL
     Route: 048
     Dates: start: 20100405, end: 20100504
  2. ATOSIL [Suspect]
     Indication: RESTLESSNESS
     Dosage: 10 MG (10 MG, 1 IN 1 D), ORAL
     Route: 048
     Dates: start: 20100405, end: 20100506

REACTIONS (4)
  - CHILLS [None]
  - OFF LABEL USE [None]
  - PYREXIA [None]
  - RHABDOMYOLYSIS [None]
